FAERS Safety Report 24093418 (Version 1)
Quarter: 2024Q3

REPORT INFORMATION
  Report Type: Spontaneous
  Country: US (occurrence: US)
  Receive Date: 20240715
  Receipt Date: 20240715
  Transmission Date: 20241017
  Serious: No
  Sender: FOUNDATION CONSUMER HEALTHCARE
  Company Number: US-FOUNDATIONCONSUMERHC-2024-US-030647

PATIENT
  Sex: Female
  Weight: 77.11 kg

DRUGS (2)
  1. PLAN B ONE-STEP [Suspect]
     Active Substance: LEVONORGESTREL
     Indication: Post coital contraception
     Dosage: 1.5 MG TABLET
     Route: 048
     Dates: start: 20240524, end: 20240524
  2. oral birth control [Concomitant]

REACTIONS (5)
  - Dysmenorrhoea [Unknown]
  - Fatigue [Unknown]
  - Headache [Unknown]
  - Intentional product misuse [Recovered/Resolved]
  - Product use in unapproved indication [Recovered/Resolved]

NARRATIVE: CASE EVENT DATE: 20240524
